FAERS Safety Report 15169229 (Version 1)
Quarter: 2018Q3

REPORT INFORMATION
  Report Type: Report from Study
  Country: US (occurrence: US)
  Receive Date: 20180720
  Receipt Date: 20180720
  Transmission Date: 20181010
  Serious: Yes (Other)
  Sender: FDA-Public Use
  Company Number: US-ASTELLAS-2018US031589

PATIENT
  Age: 47 Year
  Sex: Female

DRUGS (1)
  1. SOLIFENACIN [Suspect]
     Active Substance: SOLIFENACIN
     Indication: PRODUCT USED FOR UNKNOWN INDICATION
     Route: 048

REACTIONS (17)
  - Pain [Unknown]
  - Feeling abnormal [Unknown]
  - Back pain [Unknown]
  - Headache [Unknown]
  - Nausea [Unknown]
  - Renal pain [Unknown]
  - Arthralgia [Unknown]
  - Restless legs syndrome [Unknown]
  - Suicidal ideation [Unknown]
  - Vision blurred [Unknown]
  - Haemorrhage [Unknown]
  - Peripheral swelling [Unknown]
  - Eczema [Unknown]
  - Malaise [Unknown]
  - Depression [Unknown]
  - Alopecia [Unknown]
  - Musculoskeletal pain [Unknown]

NARRATIVE: CASE EVENT DATE: 20180301
